FAERS Safety Report 4975975-2 (Version None)
Quarter: 2006Q2

REPORT INFORMATION
  Report Type: 
  Country: None (occurrence: None)
  Receive Date: 20060411
  Receipt Date: 20060330
  Transmission Date: 20061013
  Serious: Yes (Hospitalization, Disabling, Other)
  Sender: FDA-Public Use
  Company Number: 2006034476

PATIENT
  Age: 71 Year
  Sex: Male
  Weight: 56.6996 kg

DRUGS (17)
  1. PHENYTOIN SUSPENSION (PHENYTOIN SODIUM) [Suspect]
     Indication: ILL-DEFINED DISORDER
     Dosage: 500 MG (1 IN 1 D), ORAL
     Route: 048
     Dates: start: 20050101
  2. MEDROXYPROGESTERONE [Suspect]
     Indication: ILL-DEFINED DISORDER
     Dosage: 4 MG (1 IN 1 D), ORAL
     Route: 048
  3. TEMODAR [Suspect]
     Indication: GLIOMA
     Dosage: 75 MG/M*2, ORAL
     Route: 048
     Dates: start: 20051109, end: 20051223
  4. ALL OTHER THERAPEUTIC PRODUCTS (ALL OTHER THERAPEUTIC PRODUCTS) [Suspect]
     Indication: GLIOMA
     Dates: start: 20051109, end: 20051223
  5. PROTONIX [Concomitant]
  6. CARAFATE [Concomitant]
  7. MEGACE [Concomitant]
  8. LOVENOX [Concomitant]
  9. PAXIL [Concomitant]
  10. REGLAN [Concomitant]
  11. THORAZINE [Concomitant]
  12. COMPAZINE [Concomitant]
  13. ZOFRAN [Concomitant]
  14. ATIVAN [Concomitant]
  15. ANTACIDS (ANTACIDS) [Concomitant]
  16. RITALIN [Concomitant]
  17. TEGRETOL [Concomitant]

REACTIONS (31)
  - ANOREXIA [None]
  - ANTICONVULSANT TOXICITY [None]
  - ASTHENIA [None]
  - BRADYPHRENIA [None]
  - CONSTIPATION [None]
  - COORDINATION ABNORMAL [None]
  - DEHYDRATION [None]
  - DEPRESSION [None]
  - DIFFICULTY IN WALKING [None]
  - DRUG DISPENSING ERROR [None]
  - DYSGEUSIA [None]
  - FALL [None]
  - FLAT AFFECT [None]
  - GASTRITIS [None]
  - GASTROOESOPHAGEAL REFLUX DISEASE [None]
  - HAEMATEMESIS [None]
  - HIATUS HERNIA [None]
  - HICCUPS [None]
  - HYPONATRAEMIA [None]
  - INAPPROPRIATE ANTIDIURETIC HORMONE SECRETION [None]
  - INCORRECT DOSE ADMINISTERED [None]
  - MUSCULAR WEAKNESS [None]
  - MYOPATHY STEROID [None]
  - NAUSEA [None]
  - NECROSIS [None]
  - NERVOUS SYSTEM DISORDER [None]
  - NEUROLOGICAL SYMPTOM [None]
  - PERSONALITY CHANGE [None]
  - RADIATION INJURY [None]
  - VOMITING [None]
  - WEIGHT DECREASED [None]
